FAERS Safety Report 12560920 (Version 2)
Quarter: 2016Q3

REPORT INFORMATION
  Report Type: Spontaneous
  Country: US (occurrence: US)
  Receive Date: 20160715
  Receipt Date: 20160927
  Transmission Date: 20161109
  Serious: No
  Sender: FDA-Public Use
  Company Number: US-ASTRAZENECA-2016SE73743

PATIENT
  Age: 30363 Day
  Sex: Female
  Weight: 59 kg

DRUGS (4)
  1. ADVAIR HFA [Concomitant]
     Active Substance: FLUTICASONE PROPIONATE\SALMETEROL XINAFOATE
     Indication: LUNG DISORDER
     Route: 055
  2. TUDORZA PRESSAIR [Suspect]
     Active Substance: ACLIDINIUM BROMIDE
     Indication: LUNG DISORDER
     Dosage: 1 PUFF TWICE A DAY, 400 UG
     Route: 055
     Dates: start: 2015
  3. TUDORZA PRESSAIR [Suspect]
     Active Substance: ACLIDINIUM BROMIDE
     Indication: CARDIAC FAILURE CONGESTIVE
     Dosage: 1 PUFF TWICE A DAY, 400 UG
     Route: 055
     Dates: start: 2015
  4. BLOOD PRESSURE MEDICINE [Concomitant]
     Active Substance: UNSPECIFIED INGREDIENT

REACTIONS (9)
  - Contusion [Unknown]
  - Pain [Unknown]
  - Limb injury [Unknown]
  - Device malfunction [Unknown]
  - Joint injury [Unknown]
  - Fall [Unknown]
  - Fatigue [Unknown]
  - Circumstance or information capable of leading to medication error [Unknown]
  - Device failure [Unknown]

NARRATIVE: CASE EVENT DATE: 20160702
